FAERS Safety Report 5705314-0 (Version None)
Quarter: 2008Q2

REPORT INFORMATION
  Report Type: 
  Country: None (occurrence: None)
  Receive Date: 20080410
  Receipt Date: 20080331
  Transmission Date: 20081010
  Serious: Yes (Other)
  Sender: FDA-Public Use
  Company Number: 2008-02146

PATIENT
  Age: 61 Year
  Sex: Male
  Weight: 93 kg

DRUGS (1)
  1. ANDROPATCH                    (ANDRODERM) [Suspect]
     Indication: HYPOGONADISM
     Dosage: 5 G, DAILY X 5 WEEKS, TRANSDERMAL
     Route: 062

REACTIONS (2)
  - BREAST CANCER MALE [None]
  - OESTROGEN RECEPTOR ASSAY POSITIVE [None]
